FAERS Safety Report 24098165 (Version 1)
Quarter: 2024Q3

REPORT INFORMATION
  Report Type: Spontaneous
  Country: US (occurrence: US)
  Receive Date: 20240716
  Receipt Date: 20240716
  Transmission Date: 20241017
  Serious: Yes (Hospitalization)
  Sender: AMGEN
  Company Number: US-AMGEN-USASP2024136860

PATIENT
  Age: 51 Year
  Sex: Female

DRUGS (10)
  1. PREDNISONE [Suspect]
     Active Substance: PREDNISONE
     Indication: Immunosuppression
     Dosage: UNK
     Route: 048
  2. PREDNISONE [Suspect]
     Active Substance: PREDNISONE
     Dosage: 20 MILLIGRAM, QD
     Route: 048
  3. BUMEX [Concomitant]
     Active Substance: BUMETANIDE
     Indication: Cardiogenic shock
     Dosage: 2.5 MILLIGRAM, BID
     Route: 042
  4. BUMEX [Concomitant]
     Active Substance: BUMETANIDE
     Dosage: 2 MILLIGRAM, QD
     Route: 048
  5. SOLU-MEDROL [Concomitant]
     Active Substance: METHYLPREDNISOLONE SODIUM SUCCINATE
     Dosage: 1000 MILLIGRAM, QD
     Route: 042
  6. HEPARIN [Concomitant]
     Active Substance: HEPARIN SODIUM
     Dosage: UNK
     Route: 065
  7. BUMETANIDE [Concomitant]
     Active Substance: BUMETANIDE
     Dosage: UNK
     Route: 065
  8. APIXABAN [Concomitant]
     Active Substance: APIXABAN
  9. ELIQUIS [Concomitant]
     Active Substance: APIXABAN
     Indication: Immunosuppression
     Dosage: 5 MILLIGRAM, BID
     Route: 065
  10. NUCALA [Concomitant]
     Active Substance: MEPOLIZUMAB
     Dosage: 300 MILLIGRAM, Q4WK
     Route: 058

REACTIONS (1)
  - Cardiac failure [Unknown]
